FAERS Safety Report 6243317-0 (Version None)
Quarter: 2009Q2

REPORT INFORMATION
  Report Type: 
  Country: None (occurrence: None)
  Receive Date: 20090624
  Receipt Date: 20090616
  Transmission Date: 20091009
  Serious: Yes (Other)
  Sender: FDA-Public Use
  Company Number: PHHO2008CH13379

PATIENT
  Sex: Female
  Weight: 56 kg

DRUGS (6)
  1. RAD 666 RAD+TAB+CMAS [Suspect]
     Indication: ENDOMETRIAL CANCER
     Dosage: 7.5 MG / DAY
     Route: 048
     Dates: start: 20080724, end: 20081031
  2. CAELYX [Suspect]
     Indication: ENDOMETRIAL CANCER
     Dosage: 60 MG / DAY
     Route: 048
     Dates: start: 20080724, end: 20081024
  3. SINTROM [Concomitant]
     Dosage: 1 / DAY
     Route: 048
     Dates: start: 20080526
  4. DAFALGAN [Concomitant]
     Dosage: 1 G, PRN
     Route: 048
     Dates: start: 20080828
  5. CRESTOR [Concomitant]
     Dosage: 10 MG / DAY
     Route: 048
     Dates: start: 20080724
  6. WARFARIN [Concomitant]

REACTIONS (4)
  - BACK INJURY [None]
  - BACK PAIN [None]
  - FALL [None]
  - OSTEORADIONECROSIS [None]
